FAERS Safety Report 23594329 (Version 2)
Quarter: 2024Q1

REPORT INFORMATION
  Report Type: Spontaneous
  Country: SE (occurrence: SE)
  Receive Date: 20240305
  Receipt Date: 20240307
  Transmission Date: 20240410
  Serious: Yes (Other)
  Sender: FDA-Public Use
  Company Number: SE-Merck Healthcare KGaA-2024005277

PATIENT
  Age: 50 Year
  Sex: Female

DRUGS (11)
  1. MAVENCLAD [Suspect]
     Active Substance: CLADRIBINE
     Indication: Multiple sclerosis
     Dosage: YEAR ONE THERAPY
     Dates: start: 202208
  2. MAVENCLAD [Suspect]
     Active Substance: CLADRIBINE
     Dosage: YEAR TWO THERAPY
     Dates: start: 202308
  3. OMEPRAZOLE [Concomitant]
     Active Substance: OMEPRAZOLE
     Indication: Product used for unknown indication
  4. PRUCALOPRIDE SUCCINATE [Concomitant]
     Active Substance: PRUCALOPRIDE SUCCINATE
     Indication: Product used for unknown indication
  5. PROPIOMAZINE [Concomitant]
     Active Substance: PROPIOMAZINE
     Indication: Product used for unknown indication
  6. NASONEX [Concomitant]
     Active Substance: MOMETASONE FUROATE
     Indication: Product used for unknown indication
  7. BUDESONIDE\FORMOTEROL FUMARATE [Concomitant]
     Active Substance: BUDESONIDE\FORMOTEROL FUMARATE
     Indication: Product used for unknown indication
  8. ZOPICLONE [Concomitant]
     Active Substance: ZOPICLONE
     Indication: Product used for unknown indication
  9. PHENYLPROPANOLAMINE [Concomitant]
     Active Substance: PHENYLPROPANOLAMINE
     Indication: Product used for unknown indication
  10. ALBUTEROL SULFATE [Concomitant]
     Active Substance: ALBUTEROL SULFATE
     Indication: Product used for unknown indication
  11. AERIUS (DESLORATADINE) [Concomitant]
     Active Substance: DESLORATADINE
     Indication: Product used for unknown indication

REACTIONS (7)
  - Pneumonia chlamydial [Unknown]
  - Hysterectomy [Unknown]
  - Hiatus hernia [Unknown]
  - Seasonal allergy [Unknown]
  - Rhinitis [Unknown]
  - Asthma [Unknown]
  - Sinus disorder [Unknown]
